FAERS Safety Report 16179646 (Version 1)
Quarter: 2019Q2

REPORT INFORMATION
  Report Type: Spontaneous
  Country: US (occurrence: US)
  Receive Date: 20190410
  Receipt Date: 20190410
  Transmission Date: 20190711
  Serious: No
  Sender: FDA-Public Use
  Company Number: US-FERRINGPH-2018FE06458

PATIENT
  Age: 81 Year
  Sex: Male
  Weight: 91.35 kg

DRUGS (2)
  1. FIRMAGON [Suspect]
     Active Substance: DEGARELIX ACETATE
     Indication: PROSTATE CANCER
     Dosage: 240 MG, LOADING DOSE
     Route: 058
     Dates: start: 20181107, end: 20181107
  2. FIRMAGON [Suspect]
     Active Substance: DEGARELIX ACETATE
     Dosage: MAINTENANCE DOSE EVERY 28 DAYS
     Route: 058
     Dates: start: 2018

REACTIONS (3)
  - Injection site mass [Not Recovered/Not Resolved]
  - Injection site induration [Not Recovered/Not Resolved]
  - Injection site erythema [Not Recovered/Not Resolved]

NARRATIVE: CASE EVENT DATE: 201811
